FAERS Safety Report 16073024 (Version 30)
Quarter: 2019Q3

REPORT INFORMATION
  Report Type: Report from Study
  Country: SE (occurrence: SE)
  Receive Date: 20190314
  Receipt Date: 20190930
  Transmission Date: 20191004
  Serious: Yes (Other)
  Sender: FDA-Public Use
  Company Number: SE-BRISTOL-MYERS SQUIBB COMPANY-BMS-2019-023261

PATIENT
  Age: 86 Year
  Sex: Male

DRUGS (1)
  1. NIVOLUMAB [Suspect]
     Active Substance: NIVOLUMAB
     Indication: NON-SMALL CELL LUNG CANCER
     Dosage: UNK
     Route: 065

REACTIONS (27)
  - Chest pain [Unknown]
  - Ocular hyperaemia [Unknown]
  - Hypoaesthesia [Unknown]
  - Gait disturbance [Unknown]
  - Myalgia [Unknown]
  - Dyspnoea [Unknown]
  - Haematochezia [Unknown]
  - Muscle swelling [Unknown]
  - Mucous stools [Unknown]
  - Abdominal pain [Unknown]
  - General physical health deterioration [Unknown]
  - Decreased appetite [Unknown]
  - Eye pain [Unknown]
  - Nausea [Unknown]
  - Dyschezia [Unknown]
  - Respiratory distress [Unknown]
  - Visual impairment [Unknown]
  - Fatigue [Unknown]
  - Balance disorder [Unknown]
  - Ligament pain [Unknown]
  - Vision blurred [Unknown]
  - Diarrhoea [Unknown]
  - Ligament disorder [Unknown]
  - Muscle spasms [Unknown]
  - Cough [Unknown]
  - Vomiting [Unknown]
  - Headache [Unknown]

NARRATIVE: CASE EVENT DATE: 20190302
